FAERS Safety Report 6317932-X (Version None)
Quarter: 2009Q3

REPORT INFORMATION
  Report Type: 
  Country: None (occurrence: None)
  Receive Date: 20090821
  Receipt Date: 20090821
  Transmission Date: 20100115
  Serious: Yes (Hospitalization)
  Sender: FDA-Public Use
  Company Number: US-ROXANE LABORATORIES, INC.-2009-RO-00550RO

PATIENT
  Age: 44 Year
  Sex: Female

DRUGS (16)
  1. LITHIUM CARBONATE [Suspect]
     Indication: BIPOLAR DISORDER
     Dosage: 600 MG
     Route: 048
  2. REBIF [Suspect]
     Indication: MULTIPLE SCLEROSIS
  3. KLONOPIN [Concomitant]
     Indication: DEPRESSION
  4. MESTINON [Concomitant]
     Indication: MYASTHENIA GRAVIS
  5. PREVACID [Concomitant]
     Dosage: 60 MG
  6. VIRACEPT [Concomitant]
     Indication: HEADACHE
  7. AMANTADINE HCL [Concomitant]
  8. LASIX [Concomitant]
     Dosage: 40 MG
  9. CELEBREX [Concomitant]
     Dosage: 400 MG
  10. RANITIDINE [Concomitant]
     Dosage: 300 MG
  11. PREDNISONE [Concomitant]
     Dosage: 10 MG
  12. BENATOL [Concomitant]
  13. IMITREX [Concomitant]
     Indication: MIGRAINE
  14. COMPAZINE [Concomitant]
  15. REMERON [Concomitant]
  16. MIRALAX [Concomitant]

REACTIONS (4)
  - ANXIETY [None]
  - DEPRESSION [None]
  - PARKINSONISM [None]
  - SUICIDAL IDEATION [None]
